FAERS Safety Report 9304072 (Version 5)
Quarter: 2014Q3

REPORT INFORMATION
  Report Type: Report from Study
  Country: US (occurrence: US)
  Receive Date: 20130522
  Receipt Date: 20140905
  Transmission Date: 20150326
  Serious: Yes (Death, Hospitalization, Other)
  Sender: FDA-Public Use
  Company Number: US-ASTELLAS-2013EU004321

PATIENT
  Age: 87 Year
  Sex: Male

DRUGS (11)
  1. TERAZOSIN HCL [Concomitant]
     Active Substance: TERAZOSIN HYDROCHLORIDE
     Indication: BENIGN PROSTATIC HYPERPLASIA
     Route: 048
     Dates: start: 2001, end: 20130510
  2. ENZALUTAMIDE [Suspect]
     Active Substance: ENZALUTAMIDE
     Indication: PROSTATE CANCER
     Dosage: UNK, ONCE DAILY
     Route: 048
     Dates: start: 20130424, end: 20130428
  3. VITAMIN D3 [Concomitant]
     Active Substance: CHOLECALCIFEROL
     Indication: SUPPLEMENTATION THERAPY
     Route: 048
     Dates: start: 2011, end: 20130510
  4. MULTIVIT [Concomitant]
     Active Substance: VITAMINS
     Indication: SUPPLEMENTATION THERAPY
     Dosage: 1 UNK, UID/QD
     Route: 048
     Dates: end: 20130510
  5. TRIAMTEREN HCT [Concomitant]
     Indication: OEDEMA
     Route: 048
     Dates: end: 20130510
  6. ASPIRIN. [Concomitant]
     Active Substance: ASPIRIN
     Indication: PROPHYLAXIS
     Route: 048
  7. COENZYME Q10 [Concomitant]
     Active Substance: UBIDECARENONE
     Indication: SUPPLEMENTATION THERAPY
     Route: 048
     Dates: start: 20130402, end: 20130510
  8. MIRALAX                            /06344701/ [Concomitant]
     Indication: CONSTIPATION
     Route: 048
     Dates: start: 2012, end: 20130510
  9. CALCIUM + VITAMIN D                /01483701/ [Concomitant]
     Active Substance: CALCIUM\VITAMIN D
     Indication: SUPPLEMENTATION THERAPY
     Dosage: UNK MG, UID/QD
     Route: 048
     Dates: start: 20130226
  10. LUPRON [Concomitant]
     Active Substance: LEUPROLIDE ACETATE
     Indication: PROSTATE CANCER
     Dosage: 30 MG, 1 IN 4 M
     Route: 030
     Dates: start: 2003
  11. TOLTERODINE L-TARTRATE [Concomitant]
     Indication: POLLAKIURIA
     Route: 048
     Dates: start: 20130402, end: 20130510

REACTIONS (6)
  - Renal failure acute [Not Recovered/Not Resolved]
  - Cardio-respiratory arrest [Fatal]
  - Bladder outlet obstruction [Recovered/Resolved]
  - Hydronephrosis [Not Recovered/Not Resolved]
  - Anaemia [Not Recovered/Not Resolved]
  - Haematuria [Recovered/Resolved]

NARRATIVE: CASE EVENT DATE: 20130428
